FAERS Safety Report 20757752 (Version 2)
Quarter: 2022Q2

REPORT INFORMATION
  Report Type: Spontaneous
  Country: TH (occurrence: TH)
  Receive Date: 20220427
  Receipt Date: 20220429
  Transmission Date: 20220720
  Serious: Yes (Other)
  Sender: FDA-Public Use
  Company Number: TH-NOVARTISPH-NVSC2022TH094609

PATIENT
  Age: 60 Year
  Sex: Female

DRUGS (3)
  1. RIBOCICLIB [Suspect]
     Active Substance: RIBOCICLIB
     Indication: Breast cancer metastatic
     Dosage: 600 MG, QD
     Route: 065
     Dates: start: 20200114
  2. RIBOCICLIB [Suspect]
     Active Substance: RIBOCICLIB
     Dosage: 400 MG, QD
     Route: 065
     Dates: start: 20200211
  3. LETROZOLE [Concomitant]
     Active Substance: LETROZOLE
     Indication: Product used for unknown indication
     Dosage: UNK
     Route: 065
     Dates: start: 20220114

REACTIONS (5)
  - Neutropenia [Unknown]
  - Malignant neoplasm progression [Unknown]
  - Breast cancer metastatic [Unknown]
  - Breast ulceration [Recovered/Resolved]
  - Therapeutic response decreased [Unknown]
